FAERS Safety Report 7847486-8 (Version None)
Quarter: 2011Q4

REPORT INFORMATION
  Report Type: 
  Country: None (occurrence: None)
  Receive Date: 20111025
  Receipt Date: 20110930
  Transmission Date: 20120403
  Serious: Yes (Hospitalization)
  Sender: FDA-Public Use
  Company Number: DE-ROCHE-796922

PATIENT
  Age: 51 Year
  Sex: Female
  Weight: 99.6 kg

DRUGS (6)
  1. ACTEMRA [Suspect]
     Route: 042
     Dates: start: 20110513, end: 20110513
  2. ACTEMRA [Suspect]
     Indication: SERONEGATIVE ARTHRITIS
     Route: 042
     Dates: start: 20110308, end: 20110308
  3. METHOTREXATE [Concomitant]
     Indication: SERONEGATIVE ARTHRITIS
     Route: 058
  4. ACTEMRA [Suspect]
     Route: 042
     Dates: start: 20110406, end: 20110406
  5. ACTEMRA [Suspect]
     Route: 042
     Dates: start: 20110614, end: 20110614
  6. CORTICOSTEROID (UNK INGREDIENTS) [Concomitant]
     Indication: SERONEGATIVE ARTHRITIS
     Route: 048

REACTIONS (3)
  - PNEUMONIA [None]
  - LUNG INFILTRATION [None]
  - BRONCHOPNEUMONIA [None]
